FAERS Safety Report 8829995 (Version 8)
Quarter: 2014Q1

REPORT INFORMATION
  Report Type: Spontaneous
  Country: US (occurrence: US)
  Receive Date: 20121008
  Receipt Date: 20140116
  Transmission Date: 20141002
  Serious: Yes (Hospitalization, Disabling, Other)
  Sender: FDA-Public Use
  Company Number: US-MERCK-1210USA002555

PATIENT
  Sex: Female
  Weight: 86.17 kg

DRUGS (8)
  1. FOSAMAX [Suspect]
     Indication: OSTEOPENIA
     Dosage: UNK
     Route: 048
     Dates: start: 1999, end: 2004
  2. FOSAMAX [Suspect]
     Dosage: UNK
     Route: 048
     Dates: start: 1999, end: 2009
  3. OMEPRAZOLE [Concomitant]
     Dosage: 40 MG, UNK
     Route: 048
     Dates: start: 1998
  4. PRILOSEC [Concomitant]
     Indication: DYSPEPSIA
     Dosage: 40 MG, QD
     Route: 048
     Dates: start: 1998
  5. ARAVA [Concomitant]
     Indication: SYSTEMIC LUPUS ERYTHEMATOSUS
     Dosage: 20 MG, QD
     Route: 048
     Dates: start: 2006, end: 2010
  6. PLAQUENIL [Concomitant]
     Indication: SYSTEMIC LUPUS ERYTHEMATOSUS
     Dosage: 400 MG, QD
     Route: 048
     Dates: start: 1998
  7. CELEBREX [Concomitant]
     Indication: SYSTEMIC LUPUS ERYTHEMATOSUS
     Dosage: 200 MG, BID
     Route: 048
     Dates: start: 1999
  8. PREDNISONE [Concomitant]
     Indication: SYSTEMIC LUPUS ERYTHEMATOSUS
     Dosage: 10 MG, QD

REACTIONS (94)
  - Intramedullary rod insertion [Not Recovered/Not Resolved]
  - Medical device removal [Unknown]
  - Intramedullary rod insertion [Unknown]
  - Bone graft [Unknown]
  - Femur fracture [Unknown]
  - Internal fixation of fracture [Unknown]
  - Surgery [Unknown]
  - Intramedullary rod insertion [Unknown]
  - Femur fracture [Not Recovered/Not Resolved]
  - Foot fracture [Not Recovered/Not Resolved]
  - Dental caries [Unknown]
  - Fracture nonunion [Unknown]
  - Device failure [Unknown]
  - Medical device removal [Unknown]
  - Limb asymmetry [Unknown]
  - Impaired healing [Unknown]
  - Ilium fracture [Unknown]
  - Foot fracture [Not Recovered/Not Resolved]
  - Medical device implantation [Unknown]
  - Device failure [Unknown]
  - Fracture nonunion [Unknown]
  - Osteopetrosis [Unknown]
  - Insomnia [Unknown]
  - Premenstrual syndrome [Unknown]
  - Fibromyalgia [Unknown]
  - Asthma [Recovered/Resolved]
  - Hypoaesthesia [Unknown]
  - Paraesthesia [Unknown]
  - Anaemia [Unknown]
  - Bone disorder [Unknown]
  - Mitral valve prolapse [Unknown]
  - Stress fracture [Unknown]
  - Osteoporosis [Unknown]
  - Pathological fracture [Unknown]
  - Spondylolysis [Unknown]
  - Biopsy bone [Unknown]
  - Procedural complication [Unknown]
  - Cardiac disorder [Unknown]
  - Foot deformity [Unknown]
  - Spondylolisthesis [Unknown]
  - Spinal osteoarthritis [Unknown]
  - Spinal muscular atrophy [Unknown]
  - Intervertebral disc protrusion [Unknown]
  - Arthropathy [Unknown]
  - Intervertebral disc degeneration [Unknown]
  - Vertebral osteophyte [Unknown]
  - Nerve root compression [Unknown]
  - Vertebral foraminal stenosis [Unknown]
  - Lumbar spinal stenosis [Unknown]
  - Pseudarthrosis [Unknown]
  - Radicular pain [Unknown]
  - Thoracic vertebral fracture [Unknown]
  - Migraine [Unknown]
  - Sleep apnoea syndrome [Unknown]
  - Hypertension [Unknown]
  - Cardiac murmur [Unknown]
  - Hypercholesterolaemia [Unknown]
  - Arthritis [Unknown]
  - Breast cyst excision [Unknown]
  - Skin lesion [Unknown]
  - Sacroiliitis [Unknown]
  - Restless legs syndrome [Unknown]
  - Anxiety disorder [Unknown]
  - Rhinorrhoea [Unknown]
  - Visual impairment [Unknown]
  - Dyspnoea [Unknown]
  - Oedema [Unknown]
  - Foot fracture [Unknown]
  - Depression [Unknown]
  - Bartholin^s cyst removal [Unknown]
  - Pollakiuria [Unknown]
  - Atrial fibrillation [Unknown]
  - Urinary incontinence [Unknown]
  - Hypokalaemia [Unknown]
  - Spondylolisthesis [Unknown]
  - Anaemia [Unknown]
  - Hypertension [Unknown]
  - Joint effusion [Unknown]
  - Spinal osteoarthritis [Unknown]
  - Osteoarthropathy [Unknown]
  - Bartholin^s abscess [Unknown]
  - Intervertebral disc protrusion [Unknown]
  - Paraesthesia [Unknown]
  - Foot fracture [Unknown]
  - Bone lesion [Unknown]
  - Nausea [Unknown]
  - Gastrooesophageal reflux disease [Unknown]
  - Arthralgia [Not Recovered/Not Resolved]
  - Muscle spasms [Unknown]
  - Pruritus [Unknown]
  - Back pain [Not Recovered/Not Resolved]
  - Drug ineffective [Unknown]
  - Nausea [Unknown]
  - Pain in extremity [Unknown]
